FAERS Safety Report 16373187 (Version 3)
Quarter: 2019Q3

REPORT INFORMATION
  Report Type: Spontaneous
  Country: JP (occurrence: JP)
  Receive Date: 20190530
  Receipt Date: 20190905
  Transmission Date: 20191004
  Serious: Yes (Death, Hospitalization, Other)
  Sender: FDA-Public Use
  Company Number: JP-009507513-1905JPN003299J

PATIENT
  Age: 67 Year
  Sex: Male
  Weight: 66 kg

DRUGS (1)
  1. KEYTRUDA [Suspect]
     Active Substance: PEMBROLIZUMAB
     Indication: RECTAL CANCER
     Dosage: 200 MILLIGRAM, Q3W
     Route: 041
     Dates: start: 20190422, end: 20190422

REACTIONS (5)
  - Malignant neoplasm progression [Fatal]
  - Laryngeal pain [Recovering/Resolving]
  - Dehydration [Unknown]
  - Hypophagia [Unknown]
  - Decreased appetite [Unknown]

NARRATIVE: CASE EVENT DATE: 2019
